FAERS Safety Report 18840634 (Version 1)
Quarter: 2021Q1

REPORT INFORMATION
  Report Type: Spontaneous
  Country: GB (occurrence: GB)
  Receive Date: 20210204
  Receipt Date: 20210204
  Transmission Date: 20210419
  Serious: Yes (Life-Threatening, Disabling, Other)
  Sender: FDA-Public Use
  Company Number: GB-ALVOGEN-2021-ALVOGEN-116409

PATIENT
  Age: 57 Year
  Sex: Female
  Weight: 63 kg

DRUGS (2)
  1. RENNIE [Concomitant]
     Indication: PRODUCT USED FOR UNKNOWN INDICATION
  2. LISINOPRIL. [Suspect]
     Active Substance: LISINOPRIL
     Indication: HYPERTENSION
     Dosage: 2.5
     Route: 048
     Dates: start: 20190213, end: 20190217

REACTIONS (6)
  - Headache [Recovered/Resolved]
  - Intestinal angioedema [Unknown]
  - Dizziness [Recovered/Resolved]
  - Contraindicated product prescribed [Unknown]
  - Tongue discomfort [Recovered/Resolved]
  - Abdominal pain upper [Recovered/Resolved with Sequelae]

NARRATIVE: CASE EVENT DATE: 20190213
